FAERS Safety Report 18361090 (Version 1)
Quarter: 2020Q4

REPORT INFORMATION
  Report Type: Spontaneous
  Country: US (occurrence: US)
  Receive Date: 20201008
  Receipt Date: 20201008
  Transmission Date: 20210114
  Serious: No
  Sender: FDA-Public Use
  Company Number: US-PFIZER INC-2020385489

PATIENT
  Age: 55 Year
  Sex: Female

DRUGS (2)
  1. ASPIRIN [ACETYLSALICYLIC ACID] [Concomitant]
     Active Substance: ASPIRIN
     Dosage: UNK
  2. XELJANZ [Suspect]
     Active Substance: TOFACITINIB CITRATE
     Indication: PROCTITIS ULCERATIVE
     Dosage: 5 MG, DAILY
     Route: 048
     Dates: start: 201906

REACTIONS (7)
  - Product use in unapproved indication [Unknown]
  - Musculoskeletal discomfort [Unknown]
  - Fungal infection [Recovered/Resolved]
  - Intervertebral disc degeneration [Unknown]
  - Joint range of motion decreased [Recovered/Resolved]
  - Off label use [Unknown]
  - Bursitis [Recovered/Resolved]

NARRATIVE: CASE EVENT DATE: 201906
